FAERS Safety Report 14620034 (Version 1)
Quarter: 2018Q1

REPORT INFORMATION
  Report Type: Spontaneous
  Country: FR (occurrence: FR)
  Receive Date: 20180309
  Receipt Date: 20180309
  Transmission Date: 20180509
  Serious: Yes (Hospitalization)
  Sender: FDA-Public Use
  Company Number: FR-PFIZER INC-2018097873

PATIENT
  Age: 74 Year
  Sex: Female

DRUGS (15)
  1. KALEORID LP [Suspect]
     Active Substance: POTASSIUM CHLORIDE
     Indication: HYPOKALAEMIA
     Dosage: 3 DF, 1X/DAY
     Route: 048
     Dates: start: 20171207, end: 20171208
  2. LORAMYC [Suspect]
     Active Substance: MICONAZOLE
     Indication: FUNGAL INFECTION
     Dosage: 50 MG, QD
     Route: 048
     Dates: start: 20171207, end: 20171208
  3. LOVENOX [Suspect]
     Active Substance: ENOXAPARIN SODIUM
     Indication: THROMBOSIS PROPHYLAXIS
     Dosage: 4000 IU, Q1HR (EVERY HOUR)
     Route: 058
     Dates: start: 20171129, end: 20171214
  4. TARGOCID [Suspect]
     Active Substance: TEICOPLANIN
     Dosage: UNK
     Route: 042
  5. PRIMPERAN [Concomitant]
     Active Substance: METOCLOPRAMIDE HYDROCHLORIDE
     Indication: NAUSEA
     Dosage: UNK UNK, QD
     Route: 042
     Dates: start: 20171128, end: 20171208
  6. PANTOPRAZOLE [Suspect]
     Active Substance: PANTOPRAZOLE
     Indication: GASTROOESOPHAGEAL REFLUX DISEASE
     Dosage: UNK
     Route: 048
  7. ROVAMYCINE [Concomitant]
     Active Substance: SPIRAMYCIN
     Dosage: UNK UNK, QD
     Route: 048
     Dates: start: 20171129, end: 20171207
  8. IMIPENEM [Concomitant]
     Active Substance: IMIPENEM
     Dosage: 2000 MG, Q1HR
     Route: 042
     Dates: start: 20171127, end: 20171129
  9. METRONIDAZOLE B BRAUN [Concomitant]
     Active Substance: METRONIDAZOLE
     Dosage: 1500 MG, QD
     Route: 042
     Dates: start: 20171129, end: 20171207
  10. REFRESH CELLUVISC [Concomitant]
     Active Substance: CARBOXYMETHYLCELLULOSE SODIUM
     Dosage: UNK UNK, QD
     Route: 047
     Dates: start: 20171207
  11. AMIKACINE [Concomitant]
     Active Substance: AMIKACIN
     Dosage: 900 MG, QD
     Route: 042
     Dates: start: 20170127, end: 20171130
  12. TIORFAN [Concomitant]
     Active Substance: RACECADOTRIL
     Indication: DIARRHOEA
     Dosage: 100 MG, UNK
     Route: 048
     Dates: start: 20171127, end: 20171208
  13. NOVORAPID [Concomitant]
     Active Substance: INSULIN ASPART
     Indication: HYPERGLYCAEMIA
     Dosage: 24 IU, QD
     Route: 058
     Dates: start: 20171201, end: 20171207
  14. CILASTATINE [Concomitant]
     Dosage: 2000 MG, QD
     Route: 042
     Dates: start: 20171127, end: 20171129
  15. FUNGIZONE [Suspect]
     Active Substance: AMPHOTERICIN B
     Dosage: 3 DF, 1X/DAY
     Route: 048
     Dates: start: 20171127, end: 20171128

REACTIONS (1)
  - Rash maculo-papular [Recovered/Resolved]

NARRATIVE: CASE EVENT DATE: 20171212
